FAERS Safety Report 11533715 (Version 1)
Quarter: 2015Q3

REPORT INFORMATION
  Report Type: Spontaneous
  Country: US (occurrence: US)
  Receive Date: 20150921
  Receipt Date: 20150921
  Transmission Date: 20151125
  Serious: No
  Sender: FDA-Public Use
  Company Number: US-SIGMA-TAU US-2015STPI000484

PATIENT
  Age: 81 Year
  Sex: Female

DRUGS (8)
  1. VALACYCLOVIR HCL PHARMA PAC [Concomitant]
     Active Substance: VALACYCLOVIR HYDROCHLORIDE
  2. HYDROCODONE/APAP [Concomitant]
     Active Substance: ACETAMINOPHEN\HYDROCODONE BITARTRATE
  3. MATULANE [Suspect]
     Active Substance: PROCARBAZINE HYDROCHLORIDE
     Indication: NEOPLASM MALIGNANT
     Dosage: 50 MG, QD DAYS 1-10
     Route: 048
     Dates: start: 20150314, end: 201506
  4. PREDNISONE. [Concomitant]
     Active Substance: PREDNISONE
  5. LEVOFLOXACIN. [Concomitant]
     Active Substance: LEVOFLOXACIN
  6. SENNA [Concomitant]
     Active Substance: SENNA LEAF\SENNOSIDES\SENNOSIDES A AND B
  7. FLUCONAZOLE. [Concomitant]
     Active Substance: FLUCONAZOLE
  8. SULFAMETHOXAZOLE AND TRIMETHOPRIM [Concomitant]
     Active Substance: SULFAMETHOXAZOLE\TRIMETHOPRIM

REACTIONS (1)
  - Drug ineffective [Unknown]

NARRATIVE: CASE EVENT DATE: 201506
